FAERS Safety Report 18699845 (Version 1)
Quarter: 2021Q1

REPORT INFORMATION
  Report Type: Report from Study
  Country: None (occurrence: IL)
  Receive Date: 20210104
  Receipt Date: 20210104
  Transmission Date: 20210419
  Serious: Yes (Other)
  Sender: FDA-Public Use
  Company Number: IL-ABBVIE-20K-082-3710851-00

PATIENT
  Age: 48 Year
  Sex: Female

DRUGS (1)
  1. SKYRIZI [Suspect]
     Active Substance: RISANKIZUMAB-RZAA
     Indication: PSORIASIS
     Route: 058
     Dates: start: 20201206

REACTIONS (3)
  - Eye oedema [Unknown]
  - Blood pressure increased [Unknown]
  - Intraocular pressure test [Not Recovered/Not Resolved]

NARRATIVE: CASE EVENT DATE: 202012
